FAERS Safety Report 12981706 (Version 1)
Quarter: 2016Q4

REPORT INFORMATION
  Report Type: Spontaneous
  Country: US (occurrence: US)
  Receive Date: 20161123
  Receipt Date: 20161123
  Transmission Date: 20170207
  Serious: Yes (Life-Threatening, Hospitalization)
  Sender: FDA-Public Use
  Company Number: None

PATIENT
  Age: 51 Year
  Sex: Male
  Weight: 70.6 kg

DRUGS (2)
  1. WARFARIN [Suspect]
     Active Substance: WARFARIN
     Indication: ATRIAL FLUTTER
     Route: 048
     Dates: start: 20160623, end: 20160629
  2. ASPIRIN. [Suspect]
     Active Substance: ASPIRIN
     Route: 048
     Dates: start: 20160623, end: 20160629

REACTIONS (2)
  - Pulmonary alveolar haemorrhage [None]
  - Haemorrhage [None]

NARRATIVE: CASE EVENT DATE: 20160629
